FAERS Safety Report 16042538 (Version 4)
Quarter: 2019Q2

REPORT INFORMATION
  Report Type: Spontaneous
  Country: US (occurrence: US)
  Receive Date: 20190306
  Receipt Date: 20190524
  Transmission Date: 20190711
  Serious: Yes (Other)
  Sender: FDA-Public Use
  Company Number: US-ASTRAZENECA-2018SF25808

PATIENT
  Age: 19219 Day
  Sex: Female
  Weight: 109.3 kg

DRUGS (23)
  1. NEXIUM 24HR [Suspect]
     Active Substance: ESOMEPRAZOLE MAGNESIUM
     Route: 048
  2. NORCO [Concomitant]
     Active Substance: ACETAMINOPHEN\HYDROCODONE BITARTRATE
  3. NEXIUM [Suspect]
     Active Substance: ESOMEPRAZOLE MAGNESIUM
     Route: 048
  4. PREVACID [Suspect]
     Active Substance: LANSOPRAZOLE
     Route: 065
  5. LANTUS [Concomitant]
     Active Substance: INSULIN GLARGINE
  6. LYRICA [Concomitant]
     Active Substance: PREGABALIN
  7. MEDROL [Concomitant]
     Active Substance: METHYLPREDNISOLONE
  8. KAOCHLOR [Concomitant]
  9. VYTORIN [Concomitant]
     Active Substance: EZETIMIBE\SIMVASTATIN
  10. NEXIUM [Suspect]
     Active Substance: ESOMEPRAZOLE MAGNESIUM
     Route: 048
  11. PREVACID 24 HR [Suspect]
     Active Substance: LANSOPRAZOLE
     Route: 065
  12. REMERON [Concomitant]
     Active Substance: MIRTAZAPINE
  13. METHYLPREDNISOLONE. [Concomitant]
     Active Substance: METHYLPREDNISOLONE
  14. PRILOSEC [Suspect]
     Active Substance: OMEPRAZOLE MAGNESIUM
     Route: 048
  15. NOVOLIN [Concomitant]
     Active Substance: INSULIN HUMAN
  16. ELAVIL [Concomitant]
     Active Substance: AMITRIPTYLINE HYDROCHLORIDE
  17. TRICOR [Concomitant]
     Active Substance: FENOFIBRATE
  18. TORADOL [Concomitant]
     Active Substance: KETOROLAC TROMETHAMINE
  19. ZOLOFT [Concomitant]
     Active Substance: SERTRALINE HYDROCHLORIDE
  20. VASOTEC [Concomitant]
     Active Substance: ENALAPRIL MALEATE
  21. PRILOSEC OTC [Suspect]
     Active Substance: OMEPRAZOLE MAGNESIUM
     Route: 048
  22. ZESTORETIC [Concomitant]
     Active Substance: HYDROCHLOROTHIAZIDE\LISINOPRIL
  23. TRANDATE [Concomitant]
     Active Substance: LABETALOL HYDROCHLORIDE

REACTIONS (4)
  - Renal injury [Unknown]
  - Renal failure [Unknown]
  - Chronic kidney disease [Unknown]
  - Acute kidney injury [Unknown]

NARRATIVE: CASE EVENT DATE: 20131228
